FAERS Safety Report 22958504 (Version 6)
Quarter: 2025Q2

REPORT INFORMATION
  Report Type: Report from Study
  Country: US (occurrence: US)
  Receive Date: 20230919
  Receipt Date: 20250411
  Transmission Date: 20250716
  Serious: Yes (Other)
  Sender: NOVARTIS
  Company Number: US-002147023-NVSC2023US201339

PATIENT
  Age: 77 Year
  Sex: Male

DRUGS (2)
  1. LEQVIO [Suspect]
     Active Substance: INCLISIRAN SODIUM
     Indication: Hyperlipidaemia
     Route: 058
     Dates: start: 20230609
  2. LEQVIO [Suspect]
     Active Substance: INCLISIRAN SODIUM
     Route: 058
     Dates: start: 202410

REACTIONS (14)
  - Urethral haemorrhage [Unknown]
  - Thrombosis [Unknown]
  - Ureteric obstruction [Unknown]
  - Urinary retention [Unknown]
  - Blood triglycerides increased [Unknown]
  - Chest pain [Unknown]
  - Blood cholesterol decreased [Unknown]
  - Cough [Unknown]
  - Pain in extremity [Unknown]
  - Injection site inflammation [Unknown]
  - Constipation [Unknown]
  - Injection site pain [Unknown]
  - Prostatomegaly [Unknown]
  - Urinary tract infection [Unknown]

NARRATIVE: CASE EVENT DATE: 20250101
